FAERS Safety Report 7447063-7 (Version None)
Quarter: 2011Q2

REPORT INFORMATION
  Report Type: 
  Country: None (occurrence: None)
  Receive Date: 20110429
  Receipt Date: 20110427
  Transmission Date: 20111010
  Serious: Yes (Life-Threatening, Hospitalization)
  Sender: FDA-Public Use
  Company Number: UY-B.I. PHARMACEUTICALS,INC./RIDGEFIELD-2011-RA-00041RA

PATIENT
  Age: 81 Year
  Sex: Female
  Weight: 59 kg

DRUGS (4)
  1. TECUATRO [Concomitant]
  2. DABIGATRAN ETEXILATE [Suspect]
     Indication: THROMBOSIS PROPHYLAXIS
     Dosage: 150 MG
     Dates: start: 20091022, end: 20091102
  3. ENALAPRIL [Concomitant]
  4. OMEPRAZOLE [Concomitant]

REACTIONS (1)
  - PULMONARY EMBOLISM [None]
